FAERS Safety Report 4976431-8 (Version None)
Quarter: 2006Q2

REPORT INFORMATION
  Report Type: 
  Country: None (occurrence: None)
  Receive Date: 20060412
  Receipt Date: 20060403
  Transmission Date: 20061013
  Serious: Yes (Other)
  Sender: FDA-Public Use
  Company Number: 2006048618

PATIENT
  Sex: Male
  Weight: 121.564 kg

DRUGS (7)
  1. NORVASC [Suspect]
     Indication: HYPERTENSION
     Dosage: 2.5 MG (2.5 MG, DAILY)
  2. ZOLOFT [Suspect]
     Indication: DEPRESSION
     Dosage: 50 MG (50 MG, DAILY),
  3. LISINOPRIL [Concomitant]
  4. PRANDIN [Concomitant]
  5. COUMADIN [Concomitant]
  6. METFORMIN [Concomitant]
  7. DIGOXIN [Concomitant]

REACTIONS (7)
  - BENIGN RENAL NEOPLASM [None]
  - BLOOD PRESSURE INCREASED [None]
  - CARDIAC DISORDER [None]
  - CHRONIC OBSTRUCTIVE PULMONARY DISEASE [None]
  - CONDITION AGGRAVATED [None]
  - DEPRESSION [None]
  - DIABETES MELLITUS [None]
